FAERS Safety Report 24112714 (Version 1)
Quarter: 2024Q3

REPORT INFORMATION
  Report Type: Spontaneous
  Country: US (occurrence: US)
  Receive Date: 20240719
  Receipt Date: 20240719
  Transmission Date: 20241016
  Serious: No
  Sender: AMGEN
  Company Number: US-AMGEN-USASP2024141772

PATIENT
  Sex: Male

DRUGS (1)
  1. RAVICTI [Suspect]
     Active Substance: GLYCEROL PHENYLBUTYRATE
     Indication: Arginase deficiency
     Dosage: 4 MILLILITER, TID (1.1 GM/ML)
     Route: 048
     Dates: start: 202405

REACTIONS (3)
  - Insomnia [Unknown]
  - Somnolence [Unknown]
  - Fatigue [Unknown]
